FAERS Safety Report 10176338 (Version 1)
Quarter: 2014Q2

REPORT INFORMATION
  Report Type: Spontaneous
  Country: US (occurrence: None)
  Receive Date: 20140514
  Receipt Date: 20140514
  Transmission Date: 20141212
  Serious: Yes (Hospitalization)
  Sender: FDA-Public Use
  Company Number: AUR-APL-2014-05506

PATIENT
  Age: 14 Year
  Sex: Female
  Weight: 45.2 kg

DRUGS (8)
  1. TRIMETHOPRIM+SULFAMETHOXAZOLE (TRIMETHOPRIM, SULFAMETHOXAZOLE) [Suspect]
     Indication: COUGH
     Dosage: (2 IN 1 D), ORAL
     Route: 048
  2. FLUTICASONE-SALMETEROL (FLUTICASONE W/SALMETEROL)? [Concomitant]
  3. DORNASE ALPHA (DORNASE ALFA) [Concomitant]
  4. MONTELUKAST (MONTELUKAST) [Concomitant]
  5. PANCRELIPASE (PANCRELIPASE) [Concomitant]
  6. MULTIVIITAMINS (MULTIVITAMINS) [Concomitant]
  7. TOBRAMYCIN (TOBRAMYCIN) [Concomitant]
  8. MEROPENEM (MEROPENEM) [Concomitant]

REACTIONS (13)
  - Abdominal pain [None]
  - Rash [None]
  - Fatigue [None]
  - Headache [None]
  - Lip swelling [None]
  - Eyelid oedema [None]
  - Dizziness [None]
  - Hypophagia [None]
  - Rash erythematous [None]
  - Pancreatic insufficiency [None]
  - Hepatotoxicity [None]
  - Blood immunoglobulin E increased [None]
  - International normalised ratio increased [None]
